FAERS Safety Report 17586983 (Version 1)
Quarter: 2020Q1

REPORT INFORMATION
  Report Type: Spontaneous
  Country: US (occurrence: US)
  Receive Date: 20200326
  Receipt Date: 20200326
  Transmission Date: 20200409
  Serious: No
  Sender: FDA-Public Use
  Company Number: US-SA-2020SA075658

PATIENT

DRUGS (1)
  1. DUPIXENT [Suspect]
     Active Substance: DUPILUMAB
     Indication: SEBORRHOEIC DERMATITIS

REACTIONS (3)
  - Pruritus [Unknown]
  - Rash [Unknown]
  - Symptom recurrence [Unknown]
